FAERS Safety Report 15624885 (Version 1)
Quarter: 2018Q4

REPORT INFORMATION
  Report Type: Spontaneous
  Country: US (occurrence: US)
  Receive Date: 20181113
  Receipt Date: 20181113
  Transmission Date: 20190205
  Serious: Yes (Other)
  Sender: FDA-Public Use
  Company Number: None

PATIENT
  Age: 60 Year
  Sex: Male
  Weight: 79.4 kg

DRUGS (13)
  1. ENOXAPARIN 40MG [Concomitant]
     Active Substance: ENOXAPARIN
     Dates: start: 20181026, end: 20181026
  2. AZITHROMYCIN 500MG [Concomitant]
     Active Substance: AZITHROMYCIN
     Dates: start: 20181026, end: 20181026
  3. HEPARIN INFUSION [Concomitant]
     Dates: start: 20181025, end: 20181026
  4. IOPAMIDOL 76% [Concomitant]
     Dates: start: 20181026, end: 20181026
  5. NITROGLYCERIN 400MCG [Concomitant]
     Dates: start: 20181026, end: 20181026
  6. ASPIRIN 81 MG [Concomitant]
     Active Substance: ASPIRIN
     Dates: start: 20181026, end: 20181026
  7. ATORVASTATIN 10MG [Concomitant]
     Active Substance: ATORVASTATIN
     Dates: start: 20181024, end: 20181026
  8. FENTANYL 50MCG [Concomitant]
     Dates: start: 20181026, end: 20181026
  9. LIDOCAINE 1% [Concomitant]
     Active Substance: LIDOCAINE
     Dates: start: 20181026, end: 20181026
  10. MIDAZOLAM 2MG [Concomitant]
     Dates: start: 20181026, end: 20181026
  11. HEPARIN [Suspect]
     Active Substance: HEPARIN SODIUM
     Indication: CATHETERISATION CARDIAC
     Route: 013
     Dates: start: 20181026, end: 20181026
  12. PANTOPRAZOLE 40MG [Concomitant]
     Active Substance: PANTOPRAZOLE SODIUM
     Dates: start: 20181025, end: 20181026
  13. VERAPAMIL 5 MG [Concomitant]
     Dates: start: 20181026, end: 20181026

REACTIONS (2)
  - Cardiac procedure complication [None]
  - Thrombosis in device [None]

NARRATIVE: CASE EVENT DATE: 20181026
